FAERS Safety Report 15793480 (Version 2)
Quarter: 2020Q4

REPORT INFORMATION
  Report Type: Spontaneous
  Country: US (occurrence: US)
  Receive Date: 20190107
  Receipt Date: 20201104
  Transmission Date: 20210113
  Serious: No
  Sender: FDA-Public Use
  Company Number: US-PFIZER INC-2018170321

PATIENT
  Age: 36 Year
  Sex: Male
  Weight: 136.08 kg

DRUGS (6)
  1. SOMAVERT [Suspect]
     Active Substance: PEGVISOMANT
     Dosage: 30 MG, UNK
  2. SOMAVERT [Suspect]
     Active Substance: PEGVISOMANT
     Dosage: 35 MG, DAILY (1-20MG VIAL)
     Route: 048
     Dates: start: 201805
  3. SOMAVERT [Suspect]
     Active Substance: PEGVISOMANT
     Dosage: 35 MG, DAILY (1-15MG VIAL )
     Route: 048
     Dates: start: 201805
  4. SOMAVERT [Suspect]
     Active Substance: PEGVISOMANT
     Dosage: 35 MG, DAILY (INJECT ONE 15 MG AND ONE 20 MG DAILY)
  5. SOMAVERT [Suspect]
     Active Substance: PEGVISOMANT
     Dosage: 30 MG, DAILY
  6. SOMAVERT [Suspect]
     Active Substance: PEGVISOMANT
     Indication: ACROMEGALY
     Dosage: 40 MG, UNK
     Dates: start: 2012

REACTIONS (5)
  - Blood testosterone decreased [Unknown]
  - Insulin-like growth factor increased [Unknown]
  - Incorrect route of product administration [Unknown]
  - Prescribed overdose [Unknown]
  - Fatigue [Unknown]
